FAERS Safety Report 7847671 (Version 3)
Quarter: 2012Q4

REPORT INFORMATION
  Report Type: 
  Country: VE (occurrence: VE)
  Receive Date: 20110309
  Receipt Date: 20121211
  Transmission Date: 20130627
  Serious: Yes (Other)
  Sender: FDA-Public Use
  Company Number: PHHY2011VE16254

PATIENT
  Age: 45 Year
  Sex: Male

DRUGS (3)
  1. LEPONEX [Suspect]
     Indication: SCHIZOPHRENIA
     Dosage: 400 mg, QD
  2. LEPONEX [Suspect]
     Dosage: 400 mg, QD
     Dates: start: 20110223
  3. LEPONEX [Suspect]
     Dosage: 25 mg, QD
     Dates: start: 20110225

REACTIONS (4)
  - Urinary tract infection [Recovered/Resolved]
  - White blood cell count increased [Unknown]
  - Sedation [Recovered/Resolved]
  - Dizziness [Recovered/Resolved]
